FAERS Safety Report 16761554 (Version 1)
Quarter: 2019Q3

REPORT INFORMATION
  Report Type: Report from Study
  Country: US (occurrence: US)
  Receive Date: 20190830
  Receipt Date: 20190830
  Transmission Date: 20191005
  Serious: Yes (Hospitalization)
  Sender: FDA-Public Use
  Company Number: US-REGENERON PHARMACEUTICALS, INC.-2019-40394

PATIENT

DRUGS (8)
  1. GABAPENTIN. [Concomitant]
     Active Substance: GABAPENTIN
     Indication: ADVERSE EVENT
     Dosage: 100 MG, TID
     Route: 048
     Dates: start: 20190425
  2. OXYBUTYNIN. [Concomitant]
     Active Substance: OXYBUTYNIN CHLORIDE
     Indication: ADVERSE EVENT
     Dosage: 10 MG, QD
     Route: 048
     Dates: start: 20190618
  3. CEMIPLIMAB [Suspect]
     Active Substance: CEMIPLIMAB
     Indication: CERVIX CARCINOMA RECURRENT
     Dosage: 350 MG, Q3W
     Route: 042
     Dates: start: 20190123
  4. IBUPROFEN. [Concomitant]
     Active Substance: IBUPROFEN
     Indication: ADVERSE EVENT
     Dosage: 325 MG, PRN
     Route: 048
     Dates: start: 20190116
  5. TRAMADOL. [Concomitant]
     Active Substance: TRAMADOL
     Indication: ADVERSE EVENT
     Dosage: 50 MG, PRN
     Route: 048
     Dates: start: 20190123
  6. TYLENOL [Concomitant]
     Active Substance: ACETAMINOPHEN
     Indication: ADVERSE EVENT
     Dosage: 1000 MG, PRN
     Route: 048
     Dates: start: 20190425
  7. OXYCODONE [Concomitant]
     Active Substance: OXYCODONE
     Indication: ADVERSE EVENT
     Dosage: 5 MG, PRN
     Route: 048
     Dates: start: 20190425
  8. ONDANSETRON [Concomitant]
     Active Substance: ONDANSETRON
     Indication: PROPHYLAXIS
     Dosage: 8 MG, PRN
     Route: 048
     Dates: start: 20190124

REACTIONS (2)
  - Kidney infection [Recovered/Resolved]
  - Acute kidney injury [Recovered/Resolved]

NARRATIVE: CASE EVENT DATE: 20190627
